FAERS Safety Report 5327205-X (Version None)
Quarter: 2007Q2

REPORT INFORMATION
  Report Type: 
  Country: None (occurrence: None)
  Receive Date: 20070511
  Receipt Date: 20070502
  Transmission Date: 20071010
  Serious: Yes (Other)
  Sender: FDA-Public Use
  Company Number: 2007SP008432

PATIENT
  Age: 84 Year
  Sex: Female

DRUGS (1)
  1. INTEGRILIN [Suspect]
     Indication: ANGIOPLASTY
     Dosage: ONCE
     Dates: start: 20070502, end: 20070502

REACTIONS (4)
  - CATHETER SITE HAEMORRHAGE [None]
  - MUSCLE HAEMORRHAGE [None]
  - RETROPERITONEAL HAEMORRHAGE [None]
  - SHOCK [None]
